FAERS Safety Report 7029603-5 (Version None)
Quarter: 2010Q4

REPORT INFORMATION
  Report Type: 
  Country: None (occurrence: None)
  Receive Date: 20101005
  Receipt Date: 20100927
  Transmission Date: 20110411
  Serious: Yes (Other)
  Sender: FDA-Public Use
  Company Number: NL-MERCK-1009NLD00012

PATIENT

DRUGS (2)
  1. FOSAMAX [Suspect]
     Route: 048
  2. PLACEBO (UNSPECIFIED) [Concomitant]
     Route: 048

REACTIONS (1)
  - SPINAL FRACTURE [None]
